FAERS Safety Report 11911521 (Version 2)
Quarter: 2016Q1

REPORT INFORMATION
  Report Type: Spontaneous
  Country: US (occurrence: US)
  Receive Date: 20160112
  Receipt Date: 20160204
  Transmission Date: 20160526
  Serious: Yes (Other)
  Sender: FDA-Public Use
  Company Number: US-BAYER-2016-003173

PATIENT
  Age: 28 Year
  Sex: Female
  Weight: 87.44 kg

DRUGS (9)
  1. PROAIR HFA [Concomitant]
     Active Substance: ALBUTEROL SULFATE
  2. MELATONIN [Concomitant]
     Active Substance: MELATONIN
  3. SPIRONOLACTONE. [Concomitant]
     Active Substance: SPIRONOLACTONE
     Dosage: 50 MG, BID
     Route: 048
  4. PRENATAL VITAMINS [Concomitant]
     Active Substance: VITAMINS
     Route: 048
  5. VICODIN [Concomitant]
     Active Substance: ACETAMINOPHEN\HYDROCODONE BITARTRATE
  6. SENNA [Concomitant]
     Active Substance: SENNA LEAF\SENNOSIDES\SENNOSIDES A AND B
     Indication: CONSTIPATION
     Route: 048
  7. MIRENA [Suspect]
     Active Substance: LEVONORGESTREL
     Indication: CONTRACEPTION
     Dosage: 20 MCG/24HR, CONT
     Route: 015
     Dates: start: 20130725, end: 20150819
  8. PHENTERMINE. [Concomitant]
     Active Substance: PHENTERMINE
     Dosage: 15 MG, QD
     Route: 048
  9. IRON [Concomitant]
     Active Substance: IRON

REACTIONS (6)
  - Device difficult to use [None]
  - Device breakage [None]
  - Anxiety [None]
  - Medical device pain [None]
  - Medical device discomfort [None]
  - Device dislocation [None]

NARRATIVE: CASE EVENT DATE: 20150811
